FAERS Safety Report 9628510 (Version 1)
Quarter: 2013Q4

REPORT INFORMATION
  Report Type: Spontaneous
  Country: US (occurrence: US)
  Receive Date: 20131017
  Receipt Date: 20131017
  Transmission Date: 20140711
  Serious: No
  Sender: FDA-Public Use
  Company Number: US-PFIZER INC-2013296916

PATIENT
  Age: 52 Year
  Sex: Female
  Weight: 77.1 kg

DRUGS (2)
  1. EFFEXOR XR [Suspect]
     Indication: DEPRESSION
     Dosage: 150 MG, 1X/DAY
     Route: 048
     Dates: start: 201206, end: 2013
  2. KLONOPIN [Concomitant]
     Dosage: UNK

REACTIONS (2)
  - Feeling abnormal [Unknown]
  - Drug withdrawal syndrome [Unknown]
